FAERS Safety Report 17724439 (Version 2)
Quarter: 2020Q2

REPORT INFORMATION
  Report Type: Spontaneous
  Country: US (occurrence: US)
  Receive Date: 20200429
  Receipt Date: 20200506
  Transmission Date: 20200714
  Serious: Yes (Other)
  Sender: FDA-Public Use
  Company Number: US-ALLERGAN-2012670US

PATIENT
  Sex: Female

DRUGS (1)
  1. REFRESH OPTIVE MEGA-3 [Suspect]
     Active Substance: CARBOXYMETHYLCELLULOSE SODIUM\GLYCERIN\POLYSORBATE 80
     Indication: DRY EYE
     Dosage: 1 ENTIRE TUBE FOR BOTH EYES ONCE PER DAY
     Route: 047
     Dates: start: 20200316

REACTIONS (4)
  - Mouth swelling [Recovered/Resolved]
  - Swelling face [Recovered/Resolved]
  - Intentional dose omission [Unknown]
  - Surgery [Unknown]

NARRATIVE: CASE EVENT DATE: 202003
